FAERS Safety Report 25248400 (Version 1)
Quarter: 2025Q2

REPORT INFORMATION
  Report Type: Spontaneous
  Country: US (occurrence: US)
  Receive Date: 20250429
  Receipt Date: 20250429
  Transmission Date: 20250716
  Serious: Yes (Other)
  Sender: SANOFI AVENTIS
  Company Number: US-SANOFI-02496795

PATIENT

DRUGS (1)
  1. DUPIXENT [Suspect]
     Active Substance: DUPILUMAB
     Indication: Pemphigoid

REACTIONS (5)
  - Pemphigoid [Unknown]
  - Condition aggravated [Unknown]
  - Erythema [Unknown]
  - Conjunctivitis [Unknown]
  - Product use in unapproved indication [Unknown]
